FAERS Safety Report 7401261-7 (Version None)
Quarter: 2011Q2

REPORT INFORMATION
  Report Type: 
  Country: None (occurrence: None)
  Receive Date: 20110407
  Receipt Date: 20110328
  Transmission Date: 20111010
  Serious: Yes (Other)
  Sender: FDA-Public Use
  Company Number: GB-BAXTER-2011BH008663

PATIENT
  Age: 65 Year
  Sex: Male

DRUGS (11)
  1. COTRIM [Suspect]
     Indication: PROPHYLAXIS
     Route: 065
     Dates: start: 20071101
  2. STATIN [Concomitant]
     Indication: PRODUCT USED FOR UNKNOWN INDICATION
     Route: 065
  3. RITUXIMAB [Suspect]
     Indication: PRODUCT USED FOR UNKNOWN INDICATION
     Route: 065
     Dates: start: 20080101, end: 20091201
  4. BRONCHODILATOR [Concomitant]
     Indication: PRODUCT USED FOR UNKNOWN INDICATION
     Route: 065
  5. ACETYLSALICYLIC ACID SRT [Concomitant]
     Indication: PRODUCT USED FOR UNKNOWN INDICATION
     Route: 065
  6. PROTON PUMP INHIBITORS [Concomitant]
     Indication: PRODUCT USED FOR UNKNOWN INDICATION
     Route: 065
  7. CYCLOPHOSPHAMIDE [Suspect]
     Indication: RENAL VASCULITIS
     Route: 065
     Dates: start: 20071101
  8. PREDNISOLONE [Suspect]
     Route: 065
  9. MYCOPHENOLATE MOFETIL [Suspect]
     Indication: PRODUCT USED FOR UNKNOWN INDICATION
     Route: 065
     Dates: start: 20080101, end: 20080101
  10. PREDNISOLONE [Suspect]
     Indication: RENAL VASCULITIS
     Route: 065
     Dates: start: 20071101
  11. AZATHIOPRINE [Suspect]
     Indication: PRODUCT USED FOR UNKNOWN INDICATION
     Route: 065
     Dates: end: 20080101

REACTIONS (12)
  - LOWER RESPIRATORY TRACT INFECTION [None]
  - CUSHINGOID [None]
  - MYELITIS TRANSVERSE [None]
  - CONSTIPATION [None]
  - PLEURAL FIBROSIS [None]
  - SENSORY LOSS [None]
  - DRUG INEFFECTIVE [None]
  - LEUKOPENIA [None]
  - URINARY RETENTION [None]
  - MUSCULAR WEAKNESS [None]
  - MUSCULOSKELETAL PAIN [None]
  - VASCULITIS [None]
